FAERS Safety Report 18613999 (Version 1)
Quarter: 2020Q4

REPORT INFORMATION
  Report Type: Spontaneous
  Country: US (occurrence: US)
  Receive Date: 20201214
  Receipt Date: 20201214
  Transmission Date: 20210114
  Serious: No
  Sender: FDA-Public Use
  Company Number: US-NOVOPROD-730015

PATIENT
  Age: 53 Year
  Sex: Male

DRUGS (1)
  1. LEVEMIR [Suspect]
     Active Substance: INSULIN DETEMIR
     Indication: TYPE 2 DIABETES MELLITUS
     Dosage: 47 IU, QD (47 UNITS/DAY)
     Route: 058
     Dates: start: 201702

REACTIONS (5)
  - Gastric disorder [Unknown]
  - Weight decreased [Unknown]
  - Decreased appetite [Unknown]
  - Bowel movement irregularity [Unknown]
  - Blood glucose increased [Not Recovered/Not Resolved]

NARRATIVE: CASE EVENT DATE: 2017
